FAERS Safety Report 25594043 (Version 1)
Quarter: 2025Q3

REPORT INFORMATION
  Report Type: Spontaneous
  Country: JP (occurrence: JP)
  Receive Date: 20250723
  Receipt Date: 20250723
  Transmission Date: 20251021
  Serious: Yes (Other)
  Sender: CSL BEHRING
  Company Number: JP-BEH-2025210904

PATIENT
  Age: 79 Year
  Sex: Male
  Weight: 54.7 kg

DRUGS (3)
  1. KORSUVA [Suspect]
     Active Substance: DIFELIKEFALIN ACETATE
     Indication: Pruritus
     Route: 042
     Dates: start: 20241225, end: 20250602
  2. ROXADUSTAT [Concomitant]
     Active Substance: ROXADUSTAT
  3. ROCALTROL [Concomitant]
     Active Substance: CALCITRIOL

REACTIONS (1)
  - Central hypothyroidism [Unknown]

NARRATIVE: CASE EVENT DATE: 20250530
